FAERS Safety Report 21768290 (Version 2)
Quarter: 2023Q1

REPORT INFORMATION
  Report Type: Spontaneous
  Country: FR (occurrence: FR)
  Receive Date: 20221222
  Receipt Date: 20230105
  Transmission Date: 20230417
  Serious: Yes (Other)
  Sender: FDA-Public Use
  Company Number: FR-TEVA-2022-FR-2838348

PATIENT
  Age: 47 Year
  Sex: Female

DRUGS (3)
  1. COTRIMOXAZOLE [Suspect]
     Active Substance: SULFAMETHOXAZOLE\TRIMETHOPRIM
     Indication: Pneumocystis jirovecii pneumonia
     Route: 065
  2. NINTEDANIB [Concomitant]
     Active Substance: NINTEDANIB
     Indication: Pleuroparenchymal fibroelastosis
     Dosage: 300 MILLIGRAM DAILY;
     Route: 048
  3. DANAZOL [Concomitant]
     Active Substance: DANAZOL
     Indication: Pleuroparenchymal fibroelastosis
     Dosage: 800 MILLIGRAM DAILY;
     Route: 065

REACTIONS (1)
  - Cytopenia [Recovered/Resolved]
